FAERS Safety Report 22650940 (Version 1)
Quarter: 2023Q2

REPORT INFORMATION
  Report Type: Spontaneous
  Country: US (occurrence: US)
  Receive Date: 20230628
  Receipt Date: 20230628
  Transmission Date: 20230721
  Serious: Yes (Other)
  Sender: FDA-Public Use
  Company Number: US-SA-SAC20230628000118

PATIENT
  Age: 11 Year
  Sex: Male

DRUGS (4)
  1. ELOCTATE [Suspect]
     Active Substance: EFMOROCTOCOG ALFA
     Indication: Haemorrhage
     Dosage: 1300 U (1170-1430) SLOW IV , BIW
     Route: 042
     Dates: start: 202303
  2. ELOCTATE [Suspect]
     Active Substance: EFMOROCTOCOG ALFA
     Indication: Haemorrhage
     Dosage: 1300 U (1170-1430) SLOW IV , BIW
     Route: 042
     Dates: start: 202303
  3. ELOCTATE [Suspect]
     Active Substance: EFMOROCTOCOG ALFA
     Dosage: 1300 U (1170-1430) SLOW IV , PRN
     Route: 042
     Dates: start: 202303
  4. ELOCTATE [Suspect]
     Active Substance: EFMOROCTOCOG ALFA
     Dosage: 1300 U (1170-1430) SLOW IV , PRN
     Route: 042
     Dates: start: 202303

REACTIONS (2)
  - Orbital haemorrhage [Recovered/Resolved]
  - Injury [Unknown]

NARRATIVE: CASE EVENT DATE: 20230616
